FAERS Safety Report 14071771 (Version 1)
Quarter: 2017Q4

REPORT INFORMATION
  Report Type: Spontaneous
  Country: US (occurrence: US)
  Receive Date: 20171010
  Receipt Date: 20171010
  Transmission Date: 20180321
  Serious: No
  Sender: FDA-Public Use
  Company Number: US-SA-2017SA192112

PATIENT
  Age: 62 Year
  Sex: Female
  Weight: 87.99 kg

DRUGS (1)
  1. DUPIXENT [Suspect]
     Active Substance: DUPILUMAB
     Indication: ECZEMA
     Dosage: ROUTE-UNDER THE SKIN
     Dates: start: 20170630

REACTIONS (1)
  - Pruritus [Not Recovered/Not Resolved]
